FAERS Safety Report 5582040-2 (Version None)
Quarter: 2008Q1

REPORT INFORMATION
  Report Type: 
  Country: None (occurrence: None)
  Receive Date: 20080104
  Receipt Date: 20071227
  Transmission Date: 20080703
  Serious: Yes (Death)
  Sender: FDA-Public Use
  Company Number: CA-ABBOTT-07P-028-0429896-00

PATIENT
  Sex: Male
  Weight: 59.928 kg

DRUGS (1)
  1. MAVIK [Suspect]
     Indication: HYPERTENSION
     Route: 048

REACTIONS (1)
  - CARDIOMYOPATHY [None]
